FAERS Safety Report 13247897 (Version 1)
Quarter: 2017Q1

REPORT INFORMATION
  Report Type: Spontaneous
  Country: US (occurrence: US)
  Receive Date: 20170217
  Receipt Date: 20170217
  Transmission Date: 20170428
  Serious: Yes (Disabling, Other)
  Sender: FDA-Public Use
  Company Number: US-REGENERON PHARMACEUTICALS, INC.-2017-11780

PATIENT

DRUGS (6)
  1. EYLEA [Suspect]
     Active Substance: AFLIBERCEPT
     Dosage: UNK, EVERY 6 WEEKS
     Route: 031
     Dates: start: 2016
  2. EYLEA [Suspect]
     Active Substance: AFLIBERCEPT
     Dosage: UNK, DATE OF LAST DOSE
     Route: 031
     Dates: start: 20170202, end: 20170202
  3. KEPPRA [Concomitant]
     Active Substance: LEVETIRACETAM
     Indication: SEIZURE
  4. BETADINE [Suspect]
     Active Substance: POVIDONE-IODINE
     Indication: ANTI-INFECTIVE THERAPY
  5. EYLEA [Suspect]
     Active Substance: AFLIBERCEPT
     Indication: NEOVASCULAR AGE-RELATED MACULAR DEGENERATION
     Dosage: UNK, EVERY 8 WEEKS, OD
     Route: 031
     Dates: start: 2009, end: 201611
  6. LEVOTHYROXINE. [Concomitant]
     Active Substance: LEVOTHYROXINE
     Indication: PRODUCT USED FOR UNKNOWN INDICATION
     Dosage: UNK

REACTIONS (4)
  - Blindness unilateral [Unknown]
  - Corneal abrasion [Recovered/Resolved]
  - Corneal abrasion [Recovered/Resolved]
  - Seizure [Recovered/Resolved]

NARRATIVE: CASE EVENT DATE: 2016
